FAERS Safety Report 6189685-X (Version None)
Quarter: 2009Q2

REPORT INFORMATION
  Report Type: 
  Country: None (occurrence: None)
  Receive Date: 20090514
  Receipt Date: 20071109
  Transmission Date: 20091009
  Serious: Yes (Hospitalization, Other)
  Sender: FDA-Public Use
  Company Number: US-ASTRAZENECA-2006UW21392

PATIENT
  Age: 13777 Day
  Sex: Female
  Weight: 73.9 kg

DRUGS (11)
  1. SEROQUEL [Suspect]
     Indication: SCHIZOPHRENIA
     Route: 048
     Dates: start: 20050101
  2. SEROQUEL [Suspect]
     Indication: DEPRESSION
     Route: 048
     Dates: start: 20050101
  3. SEROQUEL [Suspect]
     Route: 048
     Dates: start: 20040302
  4. SEROQUEL [Suspect]
     Route: 048
     Dates: start: 20040302
  5. PREVACID [Concomitant]
     Route: 042
  6. TYLENOL [Concomitant]
     Route: 048
  7. PAXIL [Concomitant]
     Dosage: 12.5-25MG
     Route: 048
  8. ATIVAN [Concomitant]
     Route: 048
     Dates: start: 20040302
  9. ATIVAN [Concomitant]
     Route: 030
     Dates: start: 20040302
  10. HALDOL [Concomitant]
     Route: 048
     Dates: start: 20040302
  11. HALDOL [Concomitant]
     Route: 030
     Dates: start: 20040302

REACTIONS (9)
  - ABDOMINAL PAIN [None]
  - ALCOHOLISM [None]
  - HALLUCINATION, AUDITORY [None]
  - MAJOR DEPRESSION [None]
  - PANCREATITIS [None]
  - POOR QUALITY SLEEP [None]
  - PSYCHOTIC DISORDER [None]
  - RASH [None]
  - SUTURE REMOVAL [None]
